FAERS Safety Report 9644889 (Version 1)
Quarter: 2013Q4

REPORT INFORMATION
  Report Type: Spontaneous
  Country: IQ (occurrence: IQ)
  Receive Date: 20131025
  Receipt Date: 20131025
  Transmission Date: 20140711
  Serious: Yes (Life-Threatening, Hospitalization, Other)
  Sender: FDA-Public Use
  Company Number: PHHY2013IQ119386

PATIENT
  Age: 17 Year
  Sex: Female
  Weight: 36.7 kg

DRUGS (4)
  1. EXJADE [Suspect]
     Indication: SERUM FERRITIN INCREASED
     Dosage: 1375 MG/ DAY (37.5MG PER KG)
     Route: 048
     Dates: start: 20130216, end: 20130928
  2. EXJADE [Suspect]
     Dosage: UNK UKN, UNK
  3. EXJADE [Suspect]
     Dosage: 1375 MG/DAY
     Route: 048
  4. THYROXINE [Concomitant]
     Indication: HYPOTHYROIDISM
     Dosage: 100 MG/DAY
     Route: 048
     Dates: start: 20130416

REACTIONS (4)
  - Cough [Recovered/Resolved]
  - Dyspnoea [Recovered/Resolved]
  - Cyanosis [Recovered/Resolved]
  - Rash generalised [Recovered/Resolved]
